FAERS Safety Report 8173859-2 (Version None)
Quarter: 2012Q1

REPORT INFORMATION
  Report Type: 
  Country: None (occurrence: None)
  Receive Date: 20120229
  Receipt Date: 20120221
  Transmission Date: 20120608
  Serious: Yes (Other)
  Sender: FDA-Public Use
  Company Number: US-ELI_LILLY_AND_COMPANY-US201202006490

PATIENT
  Sex: Female

DRUGS (2)
  1. EVISTA [Suspect]
     Indication: OSTEOPOROSIS
     Dosage: 60 MG, QD
     Dates: start: 20020101
  2. CALCIUM [Concomitant]

REACTIONS (2)
  - ATRIAL FIBRILLATION [None]
  - MUSCLE SPASMS [None]
